FAERS Safety Report 23400475 (Version 1)
Quarter: 2024Q1

REPORT INFORMATION
  Report Type: Report from Study
  Country: US (occurrence: US)
  Receive Date: 20240115
  Receipt Date: 20240115
  Transmission Date: 20240409
  Serious: Yes (Life-Threatening, Hospitalization, Other)
  Sender: FDA-Public Use
  Company Number: US-AMGEN-USASL2024003884

PATIENT
  Sex: Male

DRUGS (2)
  1. ENBREL [Suspect]
     Active Substance: ETANERCEPT
     Indication: Psoriasis
     Dosage: UNK
     Route: 065
  2. ENBREL [Suspect]
     Active Substance: ETANERCEPT
     Indication: Psoriatic arthropathy

REACTIONS (9)
  - Osteomyelitis [Unknown]
  - Sepsis [Unknown]
  - Staphylococcal infection [Unknown]
  - Localised infection [Unknown]
  - Medical device site joint infection [Unknown]
  - Immunodeficiency [Unknown]
  - Hip arthroplasty [Unknown]
  - Feeling abnormal [Unknown]
  - Psoriasis [Unknown]
